FAERS Safety Report 6138145-0 (Version None)
Quarter: 2009Q1

REPORT INFORMATION
  Report Type: 
  Country: None (occurrence: None)
  Receive Date: 20090331
  Receipt Date: 20090319
  Transmission Date: 20090719
  Serious: Yes (Hospitalization)
  Sender: FDA-Public Use
  Company Number: FR-WYE-H08706609

PATIENT
  Age: 79 Year
  Sex: Female

DRUGS (2)
  1. CORDARONE [Suspect]
     Dosage: UNSPECIFIED, LOADING DOSE
     Dates: start: 20090213, end: 20090221
  2. AUGMENTIN '125' [Suspect]
     Indication: SUPERINFECTION
     Dosage: UNSPECIFIED
     Dates: start: 20090217, end: 20090218

REACTIONS (3)
  - DRUG RASH WITH EOSINOPHILIA AND SYSTEMIC SYMPTOMS [None]
  - MIXED LIVER INJURY [None]
  - TUBULOINTERSTITIAL NEPHRITIS [None]
